FAERS Safety Report 18259161 (Version 4)
Quarter: 2023Q4

REPORT INFORMATION
  Report Type: Spontaneous
  Country: US (occurrence: US)
  Receive Date: 20200911
  Receipt Date: 20231019
  Transmission Date: 20240109
  Serious: Yes (Hospitalization, Other)
  Sender: FDA-Public Use
  Company Number: US-GILEAD-2020-0494507

PATIENT
  Sex: Female
  Weight: 58.957 kg

DRUGS (65)
  1. COMPLERA [Suspect]
     Active Substance: EMTRICITABINE\RILPIVIRINE HYDROCHLORIDE\TENOFOVIR DISOPROXIL FUMARATE
     Indication: HIV infection
     Dosage: UNK
     Route: 048
     Dates: start: 20151005, end: 20160107
  2. COMPLERA [Suspect]
     Active Substance: EMTRICITABINE\RILPIVIRINE HYDROCHLORIDE\TENOFOVIR DISOPROXIL FUMARATE
     Dosage: UNK
     Route: 048
     Dates: start: 20120727, end: 20120827
  3. TRUVADA [Suspect]
     Active Substance: EMTRICITABINE\TENOFOVIR DISOPROXIL FUMARATE
     Indication: HIV infection
     Dosage: UNK
     Route: 048
     Dates: start: 20110906, end: 20180812
  4. TRUVADA [Suspect]
     Active Substance: EMTRICITABINE\TENOFOVIR DISOPROXIL FUMARATE
     Dosage: UNK
     Route: 048
     Dates: start: 20100813, end: 20110518
  5. TRUVADA [Suspect]
     Active Substance: EMTRICITABINE\TENOFOVIR DISOPROXIL FUMARATE
     Dosage: UNK
     Route: 048
     Dates: start: 200709, end: 200710
  6. TRUVADA [Suspect]
     Active Substance: EMTRICITABINE\TENOFOVIR DISOPROXIL FUMARATE
     Dosage: UNK
     Route: 048
     Dates: start: 201109, end: 201908
  7. DESCOVY [Concomitant]
     Active Substance: EMTRICITABINE\TENOFOVIR ALAFENAMIDE FUMARATE
  8. ACETAMINOFEN + CODEINA [Concomitant]
  9. AMOXICILLIN [Concomitant]
     Active Substance: AMOXICILLIN
  10. AZITHROMYCIN [Concomitant]
     Active Substance: AZITHROMYCIN
  11. CIPROFLOXACIN [Concomitant]
     Active Substance: CIPROFLOXACIN
  12. CLINDAMYCIN [Concomitant]
     Active Substance: CLINDAMYCIN
  13. CONSTULOSE [Concomitant]
     Active Substance: LACTULOSE
  14. DAPSONE [Concomitant]
     Active Substance: DAPSONE
  15. DICLOFENAC SODIUM [Concomitant]
     Active Substance: DICLOFENAC\DICLOFENAC SODIUM
  16. EPIVIR [Concomitant]
     Active Substance: LAMIVUDINE
  17. GENTAMICIN [Concomitant]
     Active Substance: GENTAMICIN
  18. ACETAMINOPHEN\HYDROCODONE [Concomitant]
     Active Substance: ACETAMINOPHEN\HYDROCODONE
  19. IBUPROFEN [Concomitant]
     Active Substance: IBUPROFEN
  20. ISENTRESS [Concomitant]
     Active Substance: RALTEGRAVIR POTASSIUM
  21. ISOSORBIDE MONONITRATE [Concomitant]
     Active Substance: ISOSORBIDE MONONITRATE
  22. LABETALOL [Concomitant]
     Active Substance: LABETALOL\LABETALOL HYDROCHLORIDE
  23. LACTULOSE [Concomitant]
     Active Substance: LACTULOSE
  24. LEVOFLOXACIN [Concomitant]
     Active Substance: LEVOFLOXACIN
  25. LORAZEPAM [Concomitant]
     Active Substance: LORAZEPAM
  26. MEGESTROL [Concomitant]
     Active Substance: MEGESTROL
  27. METHOCARBAMOL [Concomitant]
     Active Substance: METHOCARBAMOL
  28. MUPIROCIN [Concomitant]
     Active Substance: MUPIROCIN
  29. NITROFURANTOIN [Concomitant]
     Active Substance: NITROFURANTOIN
  30. NORVIR [Concomitant]
     Active Substance: RITONAVIR
  31. ACETAMINOPHEN\OXYCODONE HYDROCHLORIDE [Concomitant]
     Active Substance: ACETAMINOPHEN\OXYCODONE HYDROCHLORIDE
  32. PANTOPRAZOLE [Concomitant]
     Active Substance: PANTOPRAZOLE
  33. PENICILLIN V POTASSIUM [Concomitant]
     Active Substance: PENICILLIN V POTASSIUM
  34. PREDNISONE [Concomitant]
     Active Substance: PREDNISONE
  35. PREZCOBIX [Concomitant]
     Active Substance: COBICISTAT\DARUNAVIR ETHANOLATE
  36. PROMETHAZINE [Concomitant]
     Active Substance: PROMETHAZINE HYDROCHLORIDE
  37. TIVICAY [Concomitant]
     Active Substance: DOLUTEGRAVIR SODIUM
  38. TIZANIDINE [Concomitant]
     Active Substance: TIZANIDINE
  39. TRAMADOL [Concomitant]
     Active Substance: TRAMADOL\TRAMADOL HYDROCHLORIDE
  40. TRIUMEQ [Concomitant]
     Active Substance: ABACAVIR SULFATE\DOLUTEGRAVIR SODIUM\LAMIVUDINE
  41. CITALOPRAM [Concomitant]
     Active Substance: CITALOPRAM HYDROBROMIDE
  42. KALETRA [Concomitant]
     Active Substance: LOPINAVIR\RITONAVIR
  43. PRECARE [Concomitant]
  44. RETROVIR [Concomitant]
     Active Substance: ZIDOVUDINE
  45. ZIAGEN [Concomitant]
     Active Substance: ABACAVIR SULFATE
  46. EDURANT [Concomitant]
     Active Substance: RILPIVIRINE HYDROCHLORIDE
  47. PREZISTA [Concomitant]
     Active Substance: DARUNAVIR ETHANOLATE
  48. COMBIVIR [Concomitant]
     Active Substance: LAMIVUDINE\ZIDOVUDINE
  49. ATOVAQUONE [Concomitant]
     Active Substance: ATOVAQUONE
  50. CALCITRIOL [Concomitant]
     Active Substance: CALCITRIOL
  51. CALCIUM ACETATE [Concomitant]
     Active Substance: CALCIUM ACETATE
  52. CARVEDILOL [Concomitant]
     Active Substance: CARVEDILOL
  53. CEPHALEXIN [Concomitant]
     Active Substance: CEPHALEXIN
  54. CLOTRIM-B [BECLOMETASONE DIPROPIONATE;CLOTRIMAZOLE] [Concomitant]
  55. ZOLPIDEM [Concomitant]
     Active Substance: ZOLPIDEM TARTRATE
  56. ASCORBIC ACID\BIOTIN\CALCIUM PANTOTHENATE\CYANOCOBALAMIN\FOLIC ACID\NI [Concomitant]
     Active Substance: ASCORBIC ACID\BIOTIN\CALCIUM PANTOTHENATE\CYANOCOBALAMIN\FOLIC ACID\NIACINAMIDE\PYRIDOXINE HYDROCHLO
  57. TERBINAFINE [Concomitant]
     Active Substance: TERBINAFINE
  58. DOXYCYCLINE HYCLATE [Concomitant]
     Active Substance: DOXYCYCLINE HYCLATE
  59. ELIQUIS [Concomitant]
     Active Substance: APIXABAN
  60. FLUCONAZOLE [Concomitant]
     Active Substance: FLUCONAZOLE
  61. FOLIC ACID [Concomitant]
     Active Substance: FOLIC ACID
  62. GABAPENTIN [Concomitant]
     Active Substance: GABAPENTIN
  63. HYDROXYZINE [Concomitant]
     Active Substance: HYDROXYZINE HYDROCHLORIDE
  64. LAMIVUDINE [Concomitant]
     Active Substance: LAMIVUDINE
  65. METHERGINE [Concomitant]
     Active Substance: METHYLERGONOVINE MALEATE

REACTIONS (12)
  - Pneumonia [Recovered/Resolved]
  - Hyperkalaemia [Recovered/Resolved]
  - Renal failure [Unknown]
  - End stage renal disease [Not Recovered/Not Resolved]
  - Pain [Not Recovered/Not Resolved]
  - Emotional distress [Not Recovered/Not Resolved]
  - Anxiety [Not Recovered/Not Resolved]
  - Anhedonia [Unknown]
  - Anaemia [Not Recovered/Not Resolved]
  - Hypertension [Not Recovered/Not Resolved]
  - Hyperparathyroidism secondary [Recovered/Resolved]
  - Depression [Not Recovered/Not Resolved]

NARRATIVE: CASE EVENT DATE: 20160101
